FAERS Safety Report 13180360 (Version 2)
Quarter: 2017Q1

REPORT INFORMATION
  Report Type: Report from Study
  Country: US (occurrence: US)
  Receive Date: 20170202
  Receipt Date: 20170313
  Transmission Date: 20170428
  Serious: Yes (Hospitalization, Other)
  Sender: FDA-Public Use
  Company Number: US-JNJFOC-20170101087

PATIENT
  Age: 74 Year
  Sex: Male

DRUGS (2)
  1. COUMADIN [Concomitant]
     Active Substance: WARFARIN SODIUM
  2. IMBRUVICA [Suspect]
     Active Substance: IBRUTINIB
     Indication: CHRONIC LYMPHOCYTIC LEUKAEMIA
     Route: 048
     Dates: start: 20160601, end: 2016

REACTIONS (4)
  - Urinary retention [Recovered/Resolved]
  - Haematuria [Recovered/Resolved]
  - Bladder transitional cell carcinoma stage I [Recovered/Resolved]
  - Obstructive uropathy [Recovered/Resolved]

NARRATIVE: CASE EVENT DATE: 20161222
